FAERS Safety Report 24946314 (Version 2)
Quarter: 2025Q1

REPORT INFORMATION
  Report Type: Spontaneous
  Country: US (occurrence: US)
  Receive Date: 20250210
  Receipt Date: 20250219
  Transmission Date: 20250409
  Serious: Yes (Hospitalization, Other)
  Sender: ADVANZ PHARMA
  Company Number: US-MLMSERVICE-20250123-PI370712-00271-1

PATIENT

DRUGS (10)
  1. HYDROXYCHLOROQUINE [Suspect]
     Active Substance: HYDROXYCHLOROQUINE
     Indication: Systemic lupus erythematosus
     Route: 065
  2. HYDROXYCHLOROQUINE [Suspect]
     Active Substance: HYDROXYCHLOROQUINE
     Indication: Lupus nephritis
  3. PREDNISONE [Suspect]
     Active Substance: PREDNISONE
     Indication: Systemic lupus erythematosus
  4. PREDNISONE [Suspect]
     Active Substance: PREDNISONE
     Indication: Lupus nephritis
  5. MYCOPHENOLATE MOFETIL [Suspect]
     Active Substance: MYCOPHENOLATE MOFETIL
     Indication: Lupus nephritis
  6. MYCOPHENOLATE MOFETIL [Suspect]
     Active Substance: MYCOPHENOLATE MOFETIL
     Indication: Systemic lupus erythematosus
  7. BELIMUMAB [Suspect]
     Active Substance: BELIMUMAB
     Indication: Systemic lupus erythematosus
     Dosage: 200 MG, WEEKLY
     Route: 058
  8. BELIMUMAB [Suspect]
     Active Substance: BELIMUMAB
     Indication: Lupus nephritis
  9. DAPSONE [Suspect]
     Active Substance: DAPSONE
     Indication: Systemic lupus erythematosus
  10. DAPSONE [Suspect]
     Active Substance: DAPSONE

REACTIONS (15)
  - Post herpetic neuralgia [Recovering/Resolving]
  - Superinfection bacterial [Recovering/Resolving]
  - Staphylococcal infection [Recovering/Resolving]
  - Cellulitis [Recovering/Resolving]
  - Herpes zoster [Recovering/Resolving]
  - Swelling face [Recovering/Resolving]
  - Skin lesion [Recovering/Resolving]
  - Eye pain [Recovering/Resolving]
  - Blister [Recovering/Resolving]
  - Varicella zoster virus infection [Recovering/Resolving]
  - Skin ulcer [Recovering/Resolving]
  - Pustule [Recovering/Resolving]
  - Erythema [Recovering/Resolving]
  - Rash pustular [Recovering/Resolving]
  - Rash erythematous [Recovering/Resolving]
